FAERS Safety Report 14946702 (Version 1)
Quarter: 2018Q2

REPORT INFORMATION
  Report Type: Spontaneous
  Country: US (occurrence: US)
  Receive Date: 20180529
  Receipt Date: 20180529
  Transmission Date: 20180711
  Serious: Yes (Hospitalization)
  Sender: FDA-Public Use
  Company Number: US-JNJFOC-20180534211

PATIENT
  Age: 70 Year
  Sex: Female

DRUGS (27)
  1. HYDROCODONE [Concomitant]
     Active Substance: HYDROCODONE
  2. MULTIVITAMINS [Concomitant]
     Active Substance: VITAMINS
  3. PLAVIX [Concomitant]
     Active Substance: CLOPIDOGREL BISULFATE
  4. SPIRIVA [Concomitant]
     Active Substance: TIOTROPIUM BROMIDE MONOHYDRATE
  5. CLOBETASOL [Concomitant]
     Active Substance: CLOBETASOL
  6. CYMBALTA [Concomitant]
     Active Substance: DULOXETINE HYDROCHLORIDE
  7. IBUPROFEN. [Concomitant]
     Active Substance: IBUPROFEN
  8. BIFIDOBACTERIUM LACTIS [Concomitant]
     Active Substance: BIFIDOBACTERIUM ANIMALIS LACTIS
  9. IMBRUVICA [Suspect]
     Active Substance: IBRUTINIB
     Indication: LUNG NEOPLASM MALIGNANT
     Route: 048
     Dates: start: 20170918
  10. ASPIRIN. [Concomitant]
     Active Substance: ASPIRIN
  11. CINNAMON. [Concomitant]
     Active Substance: CINNAMON
  12. COLACE [Concomitant]
     Active Substance: DOCUSATE SODIUM
  13. ESTRING [Concomitant]
     Active Substance: ESTRADIOL
  14. IRON [Concomitant]
     Active Substance: IRON
  15. MACROGOL [Concomitant]
     Active Substance: POLYETHYLENE GLYCOLS
  16. VALTREX [Concomitant]
     Active Substance: VALACYCLOVIR HYDROCHLORIDE
  17. FOLIC ACID. [Concomitant]
     Active Substance: FOLIC ACID
  18. TRIAMTERENE. [Concomitant]
     Active Substance: TRIAMTERENE
  19. LIPITOR [Concomitant]
     Active Substance: ATORVASTATIN CALCIUM
  20. OMEPRAZOLE. [Concomitant]
     Active Substance: OMEPRAZOLE
  21. WELLBUTRIN [Concomitant]
     Active Substance: BUPROPION HYDROCHLORIDE
  22. FLUTICASONE PROPIONATE W/SALMETEROL XINAFOATE [Concomitant]
     Active Substance: FLUTICASONE PROPIONATE\SALMETEROL XINAFOATE
  23. ALBUTEROL. [Concomitant]
     Active Substance: ALBUTEROL
  24. CEFALEXIN [Concomitant]
     Active Substance: CEPHALEXIN
  25. METOPROLOL. [Concomitant]
     Active Substance: METOPROLOL
  26. VENTOLIN [Concomitant]
     Active Substance: ALBUTEROL SULFATE
  27. VOLTAREN [Concomitant]
     Active Substance: DICLOFENAC SODIUM

REACTIONS (6)
  - Pneumonia [Recovered/Resolved]
  - Product use in unapproved indication [Unknown]
  - Rectal haemorrhage [Recovered/Resolved]
  - Off label use [Unknown]
  - Abdominal discomfort [Recovered/Resolved]
  - Atrial fibrillation [Recovered/Resolved]

NARRATIVE: CASE EVENT DATE: 20170918
